FAERS Safety Report 19566774 (Version 1)
Quarter: 2021Q3

REPORT INFORMATION
  Report Type: Spontaneous
  Country: CN (occurrence: CN)
  Receive Date: 20210716
  Receipt Date: 20210716
  Transmission Date: 20211014
  Serious: Yes (Other)
  Sender: FDA-Public Use
  Company Number: CN-ROCHE-2868822

PATIENT
  Age: 68 Year
  Sex: Male

DRUGS (21)
  1. MABTHERA [Suspect]
     Active Substance: RITUXIMAB
     Dosage: RITUXIMAB + HYPER?CVAD COURSE A REGIMEN
     Route: 065
     Dates: start: 20210404
  2. CYCLOPHOSPHAMIDE. [Concomitant]
     Active Substance: CYCLOPHOSPHAMIDE
     Dosage: R?ICE REGIMEN
     Route: 065
     Dates: start: 20210616
  3. CYCLOPHOSPHAMIDE. [Concomitant]
     Active Substance: CYCLOPHOSPHAMIDE
     Dosage: R?CHOP REGIMEN?RECEIVED R?CHOP REGIMEN ON 22/JAN/2021 AND 15/FEB/2021.
     Route: 065
     Dates: start: 20201231
  4. DOXORUBICIN [Concomitant]
     Active Substance: DOXORUBICIN
     Indication: DIFFUSE LARGE B-CELL LYMPHOMA
     Dosage: R?CHOP REGIMEN?RECEIVED R?CHOP REGIMEN ON 22/JAN/2021 AND 15/FEB/2021.
     Route: 065
     Dates: start: 20201231
  5. METHOTREXATE. [Concomitant]
     Active Substance: METHOTREXATE
     Indication: DIFFUSE LARGE B-CELL LYMPHOMA
     Dosage: RITUXIMAB + HYPER?CVAD COURSE B REGIMEN
     Dates: start: 20210512
  6. CYTARABINE. [Concomitant]
     Active Substance: CYTARABINE
     Indication: DIFFUSE LARGE B-CELL LYMPHOMA
     Dosage: RITUXIMAB + HYPER?CVAD COURSE B REGIMEN
     Dates: start: 20210512
  7. CISPLATIN. [Concomitant]
     Active Substance: CISPLATIN
     Indication: DIFFUSE LARGE B-CELL LYMPHOMA
     Dosage: R?GDP REGIMEN
     Dates: start: 20210311
  8. CARBOPLATIN. [Concomitant]
     Active Substance: CARBOPLATIN
     Indication: DIFFUSE LARGE B-CELL LYMPHOMA
     Dosage: R?ICE REGIMEN
     Dates: start: 20210616
  9. MABTHERA [Suspect]
     Active Substance: RITUXIMAB
     Indication: DIFFUSE LARGE B-CELL LYMPHOMA
     Dosage: R?GDP REGIMEN
     Route: 065
     Dates: start: 20210311
  10. GEMCITABINE. [Concomitant]
     Active Substance: GEMCITABINE
     Indication: DIFFUSE LARGE B-CELL LYMPHOMA
     Dosage: R?GDP REGIMEN
     Route: 065
     Dates: start: 20210311
  11. DEXAMETHASONE. [Concomitant]
     Active Substance: DEXAMETHASONE
     Dosage: RITUXIMAB + HYPER?CVAD COURSE A REGIMEN
     Dates: start: 20210404
  12. CYCLOPHOSPHAMIDE. [Concomitant]
     Active Substance: CYCLOPHOSPHAMIDE
     Indication: DIFFUSE LARGE B-CELL LYMPHOMA
     Dosage: RITUXIMAB + HYPER?CVAD COURSE A REGIMEN
     Route: 065
     Dates: start: 20210404
  13. EPIRUBICIN [Concomitant]
     Active Substance: EPIRUBICIN
     Indication: DIFFUSE LARGE B-CELL LYMPHOMA
     Dosage: RITUXIMAB + HYPER?CVAD COURSE A REGIMEN
     Dates: start: 20210404
  14. ETOPOSIDE. [Concomitant]
     Active Substance: ETOPOSIDE
     Indication: DIFFUSE LARGE B-CELL LYMPHOMA
     Dosage: R?ICE REGIMEN
     Dates: start: 20210616
  15. MABTHERA [Suspect]
     Active Substance: RITUXIMAB
     Dosage: R?ICE REGIMEN
     Route: 065
     Dates: start: 20210616
  16. PREDNISONE. [Concomitant]
     Active Substance: PREDNISONE
     Indication: DIFFUSE LARGE B-CELL LYMPHOMA
     Dosage: R?CHOP REGIMEN?RECEIVED R?CHOP REGIMEN ON 22/JAN/2021 AND 15/FEB/2021
     Route: 065
     Dates: start: 20201231
  17. MABTHERA [Suspect]
     Active Substance: RITUXIMAB
     Dosage: RITUXIMAB + HYPER?CVAD COURSE B REGIMEN
     Route: 065
     Dates: start: 20210512
  18. MABTHERA [Suspect]
     Active Substance: RITUXIMAB
     Dosage: R?CHOP REGIMEN?RECEIVED R?CHOP ON 22/JAN/2021 AND 15/FEB/2021.
     Route: 065
     Dates: start: 20201231
  19. VINCRISTINE [Concomitant]
     Active Substance: VINCRISTINE
     Indication: DIFFUSE LARGE B-CELL LYMPHOMA
     Dosage: RITUXIMAB + HYPER?CVAD COURSE A REGIMEN
     Route: 065
     Dates: start: 20210404
  20. VINCRISTINE [Concomitant]
     Active Substance: VINCRISTINE
     Dosage: R?CHOP REGIMEN?RECEIVED R?CHOP REGIMEN ON 22/JAN/2021 AND 15/FEB/2021
     Route: 065
     Dates: start: 20201231
  21. DEXAMETHASONE. [Concomitant]
     Active Substance: DEXAMETHASONE
     Indication: DIFFUSE LARGE B-CELL LYMPHOMA
     Dosage: R?GDP REGIMEN
     Dates: start: 20210311

REACTIONS (4)
  - Myelosuppression [Recovering/Resolving]
  - Diarrhoea [Recovering/Resolving]
  - Pyrexia [Recovering/Resolving]
  - Pulmonary embolism [Unknown]

NARRATIVE: CASE EVENT DATE: 2021
